FAERS Safety Report 17425824 (Version 2)
Quarter: 2020Q1

REPORT INFORMATION
  Report Type: Report from Study
  Country: ES (occurrence: ES)
  Receive Date: 20200217
  Receipt Date: 20200225
  Transmission Date: 20200409
  Serious: Yes (Hospitalization)
  Sender: FDA-Public Use
  Company Number: ES-CELGENEUS-ESP-20200203345

PATIENT
  Age: 86 Year
  Sex: Female
  Weight: 72 kg

DRUGS (12)
  1. ADIRO [Concomitant]
     Active Substance: ASPIRIN
     Indication: PRIMARY MYELOFIBROSIS
     Dosage: 100 MG X 1 X 1 DAYS
     Route: 048
     Dates: start: 20130219
  2. ATENOLOL. [Concomitant]
     Active Substance: ATENOLOL
     Indication: HYPERTENSION
     Dosage: 500 MG X 1 X 1 DAYS
     Route: 048
     Dates: start: 19900101
  3. CLORTALIDONA [Concomitant]
     Active Substance: CHLORTHALIDONE
     Indication: HYPERTENSION
     Dosage: 50 MG X 1 X 1 DAYS
     Route: 048
     Dates: start: 20191226
  4. OMEPRAZOLE. [Concomitant]
     Active Substance: OMEPRAZOLE
     Indication: PROPHYLAXIS
     Dosage: 20 MG X 1 X 1 DAYS
     Route: 048
     Dates: start: 20120316
  5. PARACETAMOL [Concomitant]
     Active Substance: ACETAMINOPHEN
     Indication: PAIN PROPHYLAXIS
     Dosage: 1 G X 1 X 1 DAYS
     Route: 048
     Dates: start: 20180505
  6. ALOPURINOL [Concomitant]
     Active Substance: ALLOPURINOL
     Indication: PRIMARY MYELOFIBROSIS
     Dosage: 100 MG X 1 X 1 DAYS
     Route: 048
     Dates: start: 20130410
  7. FUROSEMIDE. [Concomitant]
     Active Substance: FUROSEMIDE
     Indication: PRIMARY MYELOFIBROSIS
     Dosage: 40 MG X 1 X 1 DAYS
     Route: 048
     Dates: start: 20191022
  8. FEDRATINIB [Suspect]
     Active Substance: FEDRATINIB
     Indication: PRIMARY MYELOFIBROSIS
     Dosage: 400 MG X 1 X 1 DAYS
     Route: 048
     Dates: start: 20191210, end: 20200121
  9. HIDROFEROL [Concomitant]
     Active Substance: CALCIFEDIOL
     Indication: PRIMARY MYELOFIBROSIS
     Dosage: 0.266 MG X 1 X 2 WEEKS
     Route: 048
     Dates: start: 20191030
  10. LORAZEPAM. [Concomitant]
     Active Substance: LORAZEPAM
     Indication: PROPHYLAXIS
     Dosage: 1 MG X 1 X 1 DAYS
     Route: 048
     Dates: start: 20051104
  11. LUMIGAN [Concomitant]
     Active Substance: BIMATOPROST
     Indication: CATARACT OPERATION
     Dosage: 0.3 MG X 1 X 1 DAYS
     Route: 021
     Dates: start: 20161021
  12. THROMBOCID [Concomitant]
     Indication: PRIMARY MYELOFIBROSIS
     Dosage: 1 MG X PRN
     Route: 061
     Dates: start: 20191217

REACTIONS (1)
  - Renal failure [Recovered/Resolved]

NARRATIVE: CASE EVENT DATE: 20200123
